FAERS Safety Report 5303002-6 (Version None)
Quarter: 2007Q2

REPORT INFORMATION
  Report Type: 
  Country: None (occurrence: None)
  Receive Date: 20070420
  Receipt Date: 20070413
  Transmission Date: 20071010
  Serious: Yes (Other)
  Sender: FDA-Public Use
  Company Number: US-BAYER-200710524BWH

PATIENT
  Age: 30 Year
  Sex: Male
  Weight: 73 kg

DRUGS (14)
  1. AVELOX [Suspect]
     Indication: PROSTATITIS
     Route: 048
     Dates: start: 20060823, end: 20060823
  2. AVELOX [Suspect]
     Dosage: TOTAL DAILY DOSE: 400 MG  UNIT DOSE: 400 MG
     Route: 048
     Dates: start: 20060824
  3. CIPRO [Suspect]
     Indication: PROSTATITIS
     Route: 048
     Dates: start: 20061001
  4. VENTOLIN [Concomitant]
     Indication: ASTHMA
  5. ROCEPHIN [Concomitant]
     Indication: SEXUALLY TRANSMITTED DISEASE
     Route: 030
     Dates: start: 20060823
  6. ROCEPHIN [Concomitant]
     Route: 030
     Dates: start: 20060831
  7. ZITHROMAX [Concomitant]
     Indication: SEXUALLY TRANSMITTED DISEASE
     Route: 048
     Dates: start: 20060823
  8. ADVAIR DISKUS 100/50 [Concomitant]
     Indication: ASTHMA
  9. ALBUTEROL [Concomitant]
     Indication: ASTHMA
  10. DOXYCYCLINE [Concomitant]
     Dates: start: 20050831
  11. FLAGYL [Concomitant]
     Dosage: TOTAL DAILY DOSE: 1000 MG
     Route: 048
     Dates: start: 20060831
  12. FLAGYL [Concomitant]
     Dosage: TOTAL DAILY DOSE: 1000 MG
     Route: 048
  13. LEVAQUIN [Concomitant]
     Dosage: AS USED: 500 MG
     Route: 048
     Dates: start: 20061004, end: 20061006
  14. ALCOHOL [Concomitant]

REACTIONS (24)
  - AMNESIA [None]
  - ANXIETY [None]
  - APHASIA [None]
  - CEREBROVASCULAR ACCIDENT [None]
  - DYSPHAGIA [None]
  - DYSPNOEA [None]
  - FEELING ABNORMAL [None]
  - HEPATIC LESION [None]
  - HYPOAESTHESIA [None]
  - INSOMNIA [None]
  - NIGHT BLINDNESS [None]
  - PAIN IN EXTREMITY [None]
  - PANIC ATTACK [None]
  - PARAESTHESIA [None]
  - PERIPHERAL COLDNESS [None]
  - PSYCHOTIC DISORDER DUE TO A GENERAL MEDICAL CONDITION [None]
  - PUPIL FIXED [None]
  - SKIN DISCOLOURATION [None]
  - SUICIDAL IDEATION [None]
  - TREMOR [None]
  - UNEVALUABLE EVENT [None]
  - VISION BLURRED [None]
  - VISUAL ACUITY REDUCED [None]
  - VITREOUS FLOATERS [None]
